FAERS Safety Report 11155857 (Version 1)
Quarter: 2015Q2

REPORT INFORMATION
  Report Type: Spontaneous
  Country: US (occurrence: None)
  Receive Date: 20150601
  Receipt Date: 20150601
  Transmission Date: 20150821
  Serious: Yes (Disabling)
  Sender: FDA-Public Use
  Company Number: None

PATIENT
  Age: 85 Year
  Sex: Male
  Weight: 63.5 kg

DRUGS (18)
  1. ALPRAZOLAM. [Concomitant]
     Active Substance: ALPRAZOLAM
  2. TAMSULOSIN HCS [Concomitant]
  3. DORZOLAMIDE-TIMOLOL [Concomitant]
  4. BETHAMETHASONE DIPROPIONATE [Concomitant]
  5. SELENIUM [Concomitant]
     Active Substance: SELENIUM
  6. DESOXIMETASONE. [Concomitant]
     Active Substance: DESOXIMETASONE
  7. LEVAQUIN [Suspect]
     Active Substance: LEVOFLOXACIN
     Indication: BRONCHITIS
     Dosage: 1 TAB DAILY AM
     Route: 048
     Dates: start: 20150105, end: 20150115
  8. ALPHAGAN P) 0.1 % [Concomitant]
  9. CLOPIDOGREL [Concomitant]
     Active Substance: CLOPIDOGREL BISULFATE
  10. TRAVATAN Z [Concomitant]
     Active Substance: TRAVOPROST
  11. LOVASTATIN. [Concomitant]
     Active Substance: LOVASTATIN
  12. HALOG [Concomitant]
     Active Substance: HALCINONIDE
  13. PRESERVISION [Concomitant]
     Active Substance: MINERALS\VITAMINS
  14. PENTOXIFYLLINE ER TABLETS [Concomitant]
     Active Substance: PENTOXIFYLLINE
  15. LYRICA [Concomitant]
     Active Substance: PREGABALIN
  16. ASPIRIN. [Concomitant]
     Active Substance: ASPIRIN
  17. CLOBETASOL PROPIONATE. [Concomitant]
     Active Substance: CLOBETASOL PROPIONATE
  18. ZYRTEC [Concomitant]
     Active Substance: CETIRIZINE HYDROCHLORIDE

REACTIONS (6)
  - Gait disturbance [None]
  - Pain in extremity [None]
  - Dysstasia [None]
  - Tendon pain [None]
  - Peripheral swelling [None]
  - Arthralgia [None]

NARRATIVE: CASE EVENT DATE: 20150110
